FAERS Safety Report 5237481-X (Version None)
Quarter: 2007Q1

REPORT INFORMATION
  Report Type: 
  Country: None (occurrence: None)
  Receive Date: 20070213
  Receipt Date: 20070205
  Transmission Date: 20070707
  Serious: Yes (Other)
  Sender: FDA-Public Use
  Company Number: JP-PFIZER INC-2007010235

PATIENT
  Age: 29 Year
  Sex: Female

DRUGS (3)
  1. SULFASALAZINE [Suspect]
     Indication: RHEUMATOID ARTHRITIS
  2. METHOTREXATE [Suspect]
     Indication: RHEUMATOID ARTHRITIS
     Dosage: DAILY DOSE:4MG
     Route: 048
     Dates: start: 20050701
  3. BUCILLAMINE [Suspect]
     Dosage: DAILY DOSE:100MG

REACTIONS (3)
  - ARTHRALGIA [None]
  - BONE MARROW FAILURE [None]
  - JOINT SWELLING [None]
